FAERS Safety Report 6259263-2 (Version None)
Quarter: 2009Q3

REPORT INFORMATION
  Report Type: 
  Country: None (occurrence: None)
  Receive Date: 20090702
  Receipt Date: 20090625
  Transmission Date: 20100115
  Serious: Yes (Death, Hospitalization)
  Sender: FDA-Public Use
  Company Number: TRP_06282_2009

PATIENT
  Age: 18 Year
  Sex: Female

DRUGS (6)
  1. AMBISOME [Suspect]
     Indication: BRONCHOPULMONARY ASPERGILLOSIS
     Dosage: 500 MG, 10 MG/KG/DAY INTRAVENOUS (NOT OTHERWISE SPECIFIED)
     Route: 042
  2. ABELCET [Suspect]
     Indication: BRONCHOPULMONARY ASPERGILLOSIS
     Dosage: 250 MG, 5 MG/KG/DAY INTRAVENOUS (NOT OTHERWISE SPECIFIED)
     Route: 042
  3. POSACONAZOLE [Suspect]
     Indication: BRONCHOPULMONARY ASPERGILLOSIS
     Dosage: 200 MG 1X 6 HOURS ORAL
     Route: 048
  4. VORICONAZOLE [Suspect]
     Indication: BRONCHOPULMONARY ASPERGILLOSIS
     Dosage: DF  (A FEW WEEKS)
  5. MICAFUNGIN [Suspect]
     Indication: BRONCHOPULMONARY ASPERGILLOSIS
     Dosage: 100 MG/KG/DAY INTRAVENOUS (NOT OTHERWISE SPECIFIED), (100 MG)
     Route: 042
  6. HYDROCHLOROTHIAZIDE [Suspect]
     Indication: NEPHROGENIC DIABETES INSIPIDUS
     Dosage: 25 MG QD

REACTIONS (15)
  - APLASTIC ANAEMIA [None]
  - BLOOD BICARBONATE DECREASED [None]
  - CARDIO-RESPIRATORY ARREST [None]
  - CONDITION AGGRAVATED [None]
  - CONVULSION [None]
  - DIABETES INSIPIDUS [None]
  - DISEASE PROGRESSION [None]
  - HYPOKALAEMIA [None]
  - HYPOTENSION [None]
  - LUNG DISORDER [None]
  - LYMPHADENOPATHY [None]
  - NO THERAPEUTIC RESPONSE [None]
  - PANCYTOPENIA [None]
  - PATHOGEN RESISTANCE [None]
  - TACHYCARDIA [None]
